FAERS Safety Report 5610850-1 (Version None)
Quarter: 2008Q1

REPORT INFORMATION
  Report Type: 
  Country: None (occurrence: None)
  Receive Date: 20080201
  Receipt Date: 20080122
  Transmission Date: 20080703
  Serious: Yes (Other)
  Sender: FDA-Public Use
  Company Number: US-JNJFOC-20071000126

PATIENT
  Sex: Female
  Weight: 64.86 kg

DRUGS (11)
  1. DURAGESIC-100 [Suspect]
     Indication: PAIN
     Route: 062
  2. FLEXERIL [Concomitant]
     Indication: MUSCLE DISORDER
     Route: 048
  3. MOTRIN [Concomitant]
     Indication: INFLAMMATION
     Dosage: BEFORE 17-APR-2007
     Route: 048
  4. NEURONTIN [Concomitant]
     Route: 048
  5. NEURONTIN [Concomitant]
     Indication: NEURALGIA
     Route: 048
  6. VALIUM [Concomitant]
     Route: 048
  7. VALIUM [Concomitant]
     Indication: SLEEP DISORDER
     Dosage: AT NIGHT
     Route: 048
  8. NORCO [Concomitant]
     Dosage: 7.5/325MG
     Route: 048
  9. NORCO [Concomitant]
     Indication: PAIN
     Dosage: 75/325MG, 6-8 TABLETS DAILY AS NEEDED
     Route: 048
  10. EFFEXOR XR [Concomitant]
     Indication: ANXIETY
     Route: 048
  11. THYROID TAB [Concomitant]

REACTIONS (7)
  - ABDOMINAL DISTENSION [None]
  - BACK PAIN [None]
  - DYSPNOEA [None]
  - INCORRECT DRUG ADMINISTRATION DURATION [None]
  - OEDEMA PERIPHERAL [None]
  - PRURITUS GENERALISED [None]
  - RENAL PAIN [None]
